FAERS Safety Report 4836507-2 (Version None)
Quarter: 2005Q4

REPORT INFORMATION
  Report Type: 
  Country: None (occurrence: None)
  Receive Date: 20051123
  Receipt Date: 20050808
  Transmission Date: 20060501
  Serious: Yes (Hospitalization)
  Sender: FDA-Public Use
  Company Number: JP-GLAXOSMITHKLINE-B0390225A

PATIENT
  Age: 40 Year
  Sex: Male

DRUGS (7)
  1. HEPSERA [Suspect]
     Indication: HEPATITIS B
     Dosage: 10MG PER DAY
     Route: 048
     Dates: start: 20040607
  2. ZEFIX [Suspect]
     Indication: HEPATITIS B
     Dosage: 100MG PER DAY
     Route: 048
     Dates: start: 20030806
  3. SUMIFERON [Suspect]
     Indication: HEPATITIS B
     Dosage: 6IU6 PER DAY
  4. PL [Concomitant]
     Indication: NASOPHARYNGITIS
     Route: 048
     Dates: start: 20040607, end: 20040614
  5. GASTER [Concomitant]
     Indication: GASTRITIS
     Dosage: 40MG PER DAY
     Route: 048
     Dates: start: 20030904, end: 20050307
  6. LENDORMIN [Concomitant]
     Indication: INSOMNIA
     Route: 048
     Dates: start: 20030904
  7. RESTAMIN [Concomitant]
     Indication: PRURITUS
     Route: 061
     Dates: start: 20040802

REACTIONS (5)
  - DIZZINESS POSTURAL [None]
  - FALL [None]
  - HEMIPLEGIA [None]
  - HYPOAESTHESIA [None]
  - LOSS OF CONSCIOUSNESS [None]
